FAERS Safety Report 10248686 (Version 1)
Quarter: 2014Q2

REPORT INFORMATION
  Report Type: Spontaneous
  Country: CA (occurrence: CA)
  Receive Date: 20140620
  Receipt Date: 20140620
  Transmission Date: 20141212
  Serious: Yes (Hospitalization, Other)
  Sender: FDA-Public Use
  Company Number: CA-AMGEN-CANSP2014045262

PATIENT
  Age: 82 Year
  Sex: Female

DRUGS (4)
  1. PROLIA [Suspect]
     Indication: OSTEOPOROSIS
     Dosage: 60 MG, Q6MO
     Route: 058
     Dates: start: 201312
  2. ENBREL [Concomitant]
  3. CALCIUM [Concomitant]
     Dosage: UNK
  4. RANITIDINE [Concomitant]
     Indication: GASTROOESOPHAGEAL REFLUX DISEASE
     Dosage: UNK

REACTIONS (6)
  - Thoracic vertebral fracture [Unknown]
  - Upper limb fracture [Recovering/Resolving]
  - Humerus fracture [Unknown]
  - Fall [Unknown]
  - Tooth fracture [Unknown]
  - Back pain [Unknown]
